FAERS Safety Report 15330732 (Version 4)
Quarter: 2021Q2

REPORT INFORMATION
  Report Type: Spontaneous
  Country: BG (occurrence: BG)
  Receive Date: 20180829
  Receipt Date: 20210525
  Transmission Date: 20210716
  Serious: Yes (Hospitalization, Other)
  Sender: FDA-Public Use
  Company Number: PHHY2018BG079987

PATIENT
  Age: 45 Year
  Sex: Male

DRUGS (3)
  1. CO IRBESSO [Suspect]
     Active Substance: HYDROCHLOROTHIAZIDE\IRBESARTAN
     Indication: HYPERTENSION
     Dosage: 1 DF, QD (150 MG/12.5 MG)
     Route: 065
     Dates: end: 20180414
  2. VALSARTAN. [Suspect]
     Active Substance: VALSARTAN
     Indication: HYPERTENSION
     Dosage: 160 MG, QD
     Route: 065
  3. ASPIRIN. [Suspect]
     Active Substance: ASPIRIN
     Indication: HYPERTENSION
     Dosage: 100 MG, QD (ONCE DAILY AT NIGHT)
     Route: 065
     Dates: end: 20180414

REACTIONS (7)
  - Fungal infection [Unknown]
  - Tinea infection [Unknown]
  - Malignant melanoma stage I [Recovering/Resolving]
  - Malignant melanoma [Recovered/Resolved]
  - Condition aggravated [Unknown]
  - Psoriasis [Unknown]
  - Apical granuloma [Unknown]

NARRATIVE: CASE EVENT DATE: 2018
